FAERS Safety Report 7786778-8 (Version None)
Quarter: 2011Q3

REPORT INFORMATION
  Report Type: 
  Country: None (occurrence: None)
  Receive Date: 20110929
  Receipt Date: 20110923
  Transmission Date: 20111222
  Serious: Yes (Other)
  Sender: FDA-Public Use
  Company Number: US-PFIZER INC-2011228058

PATIENT
  Sex: Male
  Weight: 53.52 kg

DRUGS (5)
  1. LIPITOR [Suspect]
     Indication: BLOOD CHOLESTEROL INCREASED
     Dosage: 20 MG, ONCE DAILY
     Route: 048
  2. GLIPIZIDE [Concomitant]
     Dosage: 10MG, UNK
  3. ATORVASTATIN CALCIUM [Suspect]
     Indication: BLOOD CHOLESTEROL INCREASED
     Dosage: 20 MG,  ONCE DAILY
     Route: 048
  4. LISINOPRIL [Concomitant]
     Dosage: UNK
  5. SIMVASTATIN [Concomitant]
     Dosage: UNK

REACTIONS (4)
  - VASCULAR OCCLUSION [None]
  - NEPHROPATHY [None]
  - RENAL FAILURE [None]
  - PERIPHERAL ARTERIAL OCCLUSIVE DISEASE [None]
